FAERS Safety Report 17484440 (Version 1)
Quarter: 2020Q1

REPORT INFORMATION
  Report Type: Spontaneous
  Country: US (occurrence: US)
  Receive Date: 20200302
  Receipt Date: 20200302
  Transmission Date: 20200409
  Serious: Yes (Death, Hospitalization)
  Sender: FDA-Public Use
  Company Number: NVSC2020US057293

PATIENT
  Age: 77 Year
  Sex: Male

DRUGS (9)
  1. WARFARIN [Interacting]
     Active Substance: WARFARIN
     Indication: DEEP VEIN THROMBOSIS
     Dosage: 3 MG, QD
     Route: 065
  2. ETOPOSIDE. [Interacting]
     Active Substance: ETOPOSIDE
     Indication: LUNG CARCINOMA CELL TYPE UNSPECIFIED STAGE IV
     Dosage: UNK
     Route: 065
  3. CISPLATIN. [Interacting]
     Active Substance: CISPLATIN
     Indication: LUNG CARCINOMA CELL TYPE UNSPECIFIED STAGE IV
     Dosage: UNK
     Route: 065
  4. WARFARIN [Interacting]
     Active Substance: WARFARIN
     Dosage: 6 MG, QD
     Route: 065
  5. FISH OIL [Interacting]
     Active Substance: FISH OIL
     Indication: LUNG CARCINOMA CELL TYPE UNSPECIFIED STAGE IV
     Dosage: UNK
     Route: 065
  6. LEVOFLOXACIN. [Suspect]
     Active Substance: LEVOFLOXACIN
     Indication: LUNG CARCINOMA CELL TYPE UNSPECIFIED STAGE IV
     Dosage: UNK
     Route: 065
  7. APREPITANT. [Interacting]
     Active Substance: APREPITANT
     Indication: LUNG CARCINOMA CELL TYPE UNSPECIFIED STAGE IV
     Dosage: UNK
     Route: 065
  8. METRONIDAZOLE. [Interacting]
     Active Substance: METRONIDAZOLE
     Indication: LUNG CARCINOMA CELL TYPE UNSPECIFIED STAGE IV
     Dosage: UNK
     Route: 065
  9. DEXAMETHASONE. [Interacting]
     Active Substance: DEXAMETHASONE
     Indication: LUNG CARCINOMA CELL TYPE UNSPECIFIED STAGE IV
     Dosage: UNK
     Route: 065

REACTIONS (4)
  - Product use in unapproved indication [Unknown]
  - Embolism [Fatal]
  - Drug interaction [Unknown]
  - Sepsis [Fatal]
